FAERS Safety Report 16988875 (Version 4)
Quarter: 2020Q1

REPORT INFORMATION
  Report Type: Spontaneous
  Country: HU (occurrence: HU)
  Receive Date: 20191104
  Receipt Date: 20200204
  Transmission Date: 20200409
  Serious: No
  Sender: FDA-Public Use
  Company Number: NVSC2019HU011721

PATIENT
  Age: 38 Year
  Sex: Male

DRUGS (1)
  1. ADALIMUMAB [Suspect]
     Active Substance: ADALIMUMAB
     Indication: CROHN^S DISEASE
     Dosage: 40 MG (BIWEEKLY)
     Route: 065

REACTIONS (2)
  - Therapeutic response decreased [Unknown]
  - Lymphomatoid papulosis [Recovered/Resolved with Sequelae]
